FAERS Safety Report 25233616 (Version 1)
Quarter: 2025Q2

REPORT INFORMATION
  Report Type: Spontaneous
  Country: US (occurrence: US)
  Receive Date: 20250424
  Receipt Date: 20250424
  Transmission Date: 20250716
  Serious: Yes (Life-Threatening, Hospitalization, Other)
  Sender: RANBAXY
  Company Number: US-SUN PHARMACEUTICAL INDUSTRIES LTD-2025R1-504778

PATIENT
  Age: 15 Year
  Sex: Male

DRUGS (10)
  1. AMITRIPTYLINE [Suspect]
     Active Substance: AMITRIPTYLINE
     Indication: Dystonia
     Route: 065
  2. BACLOFEN [Suspect]
     Active Substance: BACLOFEN
     Indication: Dystonia
     Route: 037
  3. METHADONE [Suspect]
     Active Substance: METHADONE HYDROCHLORIDE
     Indication: Dystonia
     Route: 065
  4. DEXMEDETOMIDINE [Suspect]
     Active Substance: DEXMEDETOMIDINE
     Indication: Dystonia
     Route: 065
  5. CYCLOBENZAPRINE [Suspect]
     Active Substance: CYCLOBENZAPRINE
     Indication: Dystonia
     Route: 065
  6. DANTROLENE [Suspect]
     Active Substance: DANTROLENE
     Indication: Dystonia
     Route: 065
  7. HYDROMORPHONE [Suspect]
     Active Substance: HYDROMORPHONE
     Indication: Dystonia
     Route: 065
  8. HYOSCYAMINE [Suspect]
     Active Substance: HYOSCYAMINE
     Indication: Dystonia
     Route: 065
  9. KETAMINE [Suspect]
     Active Substance: KETAMINE
     Indication: Dystonia
     Route: 065
  10. PRUCALOPRIDE [Suspect]
     Active Substance: PRUCALOPRIDE
     Indication: Dystonia
     Route: 065

REACTIONS (1)
  - Therapy non-responder [Unknown]
